FAERS Safety Report 7635660-5 (Version None)
Quarter: 2011Q3

REPORT INFORMATION
  Report Type: 
  Country: None (occurrence: None)
  Receive Date: 20110726
  Receipt Date: 20110719
  Transmission Date: 20111222
  Serious: Yes (Other)
  Sender: FDA-Public Use
  Company Number: PHHY2011GB51811

PATIENT
  Age: 61 Year
  Sex: Female

DRUGS (5)
  1. MYCOPHENOLATE MOFETIL [Suspect]
     Indication: RENAL TRANSPLANT
     Dosage: 2 G, DAILY
     Dates: start: 20050201
  2. CYCLOSPORINE [Concomitant]
     Indication: RENAL TRANSPLANT
     Dosage: UNK UKN, UNK
  3. TACROLIMUS [Concomitant]
     Dosage: UNK
  4. PREDNISOLONE [Concomitant]
     Dosage: UNK
  5. MYCOPHENOLATE MOFETIL [Suspect]
     Dosage: 2 G, UNK
     Dates: start: 20090601

REACTIONS (2)
  - HYPOGAMMAGLOBULINAEMIA [None]
  - BRONCHIECTASIS [None]
